FAERS Safety Report 16074673 (Version 1)
Quarter: 2019Q1

REPORT INFORMATION
  Report Type: Spontaneous
  Country: IT (occurrence: IT)
  Receive Date: 20190314
  Receipt Date: 20190314
  Transmission Date: 20190418
  Serious: Yes (Hospitalization, Other)
  Sender: FDA-Public Use
  Company Number: IT-BIODELIVERY SCIENCES INTERNATIONAL-2017BDSI0294

PATIENT
  Age: 77 Year
  Sex: Male

DRUGS (11)
  1. ERYTHROPOIETIN [Concomitant]
     Active Substance: ERYTHROPOIETIN
  2. OXYCODONE [Concomitant]
     Active Substance: OXYCODONE
  3. ENOXAPARIN [Concomitant]
     Active Substance: ENOXAPARIN
  4. DEXAMETHASONE. [Concomitant]
     Active Substance: DEXAMETHASONE
  5. CEFAZOLIN [Concomitant]
     Active Substance: CEFAZOLIN
  6. BECLOMETASONE [Concomitant]
     Active Substance: BECLOMETHASONE DIPROPIONATE
  7. SALBUTAMOL [Concomitant]
     Active Substance: ALBUTEROL
  8. OXYGEN. [Concomitant]
     Active Substance: OXYGEN
  9. FENTANYL. [Suspect]
     Active Substance: FENTANYL
     Indication: PAIN
     Route: 062
     Dates: start: 201507
  10. PARACETAMOL [Concomitant]
     Active Substance: ACETAMINOPHEN
  11. KETOPROFEN. [Concomitant]
     Active Substance: KETOPROFEN

REACTIONS (9)
  - Toxicity to various agents [Recovered/Resolved]
  - Overdose [Recovered/Resolved]
  - Generalised oedema [Recovered/Resolved]
  - Communication disorder [Recovered/Resolved]
  - Status epilepticus [Recovered/Resolved]
  - Patient uncooperative [Recovered/Resolved]
  - Miosis [Recovered/Resolved]
  - Disorientation [Recovered/Resolved]
  - Asthenia [Recovered/Resolved]

NARRATIVE: CASE EVENT DATE: 20150817
